FAERS Safety Report 16489558 (Version 1)
Quarter: 2019Q2

REPORT INFORMATION
  Report Type: Spontaneous
  Country: GB (occurrence: GB)
  Receive Date: 20190628
  Receipt Date: 20190628
  Transmission Date: 20190711
  Serious: Yes (Hospitalization)
  Sender: FDA-Public Use
  Company Number: GB-UCBSA-2019027084

PATIENT
  Age: 52 Year
  Sex: Male

DRUGS (3)
  1. NITROFURANTOIN. [Concomitant]
     Active Substance: NITROFURANTOIN
     Indication: PRODUCT USED FOR UNKNOWN INDICATION
  2. KEPPRA [Suspect]
     Active Substance: LEVETIRACETAM
     Indication: SEIZURE PROPHYLAXIS
     Dosage: UNK
     Route: 048
     Dates: start: 201805, end: 201807
  3. KEPPRA [Suspect]
     Active Substance: LEVETIRACETAM
     Indication: OFF LABEL USE

REACTIONS (5)
  - Blood urine present [Recovered/Resolved]
  - Off label use [Unknown]
  - Rash maculo-papular [Recovered/Resolved]
  - Oral mucosal blistering [Recovered/Resolved]
  - Stevens-Johnson syndrome [Recovered/Resolved]

NARRATIVE: CASE EVENT DATE: 201805
